FAERS Safety Report 20660231 (Version 1)
Quarter: 2022Q1

REPORT INFORMATION
  Report Type: Spontaneous
  Country: IT (occurrence: IT)
  Receive Date: 20220331
  Receipt Date: 20220331
  Transmission Date: 20220423
  Serious: Yes (Other)
  Sender: FDA-Public Use
  Company Number: IT-JNJFOC-20220323190

PATIENT
  Age: 25 Year
  Sex: Male
  Weight: 60 kg

DRUGS (3)
  1. TAVOR (LORAZEPAM) [Suspect]
     Active Substance: LORAZEPAM
     Dosage: 20 TABLETS, SINGLE (ALSO REPORTED AS 3 DF, SINGLE)
     Route: 048
  2. FLUVOXAMINE [Suspect]
     Active Substance: FLUVOXAMINE
     Dosage: 6 DF, SINGLE (1000 COATED TABLETS 100 MG)
  3. RISPERDAL [Suspect]
     Active Substance: RISPERIDONE
     Dosage: 5 DF, SINGLE (1 MG FILM COATED TABLETS)
     Route: 048

REACTIONS (3)
  - Intentional overdose [Unknown]
  - Intentional product misuse [Unknown]
  - Intentional self-injury [Unknown]
